FAERS Safety Report 21856944 (Version 1)
Quarter: 2023Q1

REPORT INFORMATION
  Report Type: Report from Study
  Country: US (occurrence: US)
  Receive Date: 20230113
  Receipt Date: 20230113
  Transmission Date: 20230418
  Serious: No
  Sender: FDA-Public Use
  Company Number: US-ABBVIE-4268125

PATIENT
  Sex: Male

DRUGS (4)
  1. IMBRUVICA [Suspect]
     Active Substance: IBRUTINIB
     Indication: Chronic lymphocytic leukaemia
     Route: 048
     Dates: start: 20220721
  2. Delsym Cgh/Chest Cong DM Child Oral [Concomitant]
     Indication: Product used for unknown indication
     Route: 048
  3. Diclofenac Sodium Oral Tablet Delay [Concomitant]
     Indication: Product used for unknown indication
     Route: 048
  4. B Complex 50 Oral Tablet Extended R [Concomitant]
     Indication: Product used for unknown indication
     Route: 048

REACTIONS (1)
  - Arthralgia [Not Recovered/Not Resolved]
